FAERS Safety Report 5546038-2 (Version None)
Quarter: 2007Q4

REPORT INFORMATION
  Report Type: 
  Country: None (occurrence: None)
  Receive Date: 20071211
  Receipt Date: 20070827
  Transmission Date: 20080405
  Serious: No
  Sender: FDA-Public Use
  Company Number: US-BRISTOL-MYERS SQUIBB COMPANY-13889936

PATIENT
  Sex: Female

DRUGS (2)
  1. EMSAM [Suspect]
     Indication: DEPRESSION
     Route: 062
     Dates: start: 20061101
  2. VIVELLE [Concomitant]
     Indication: OESTROGEN REPLACEMENT THERAPY

REACTIONS (1)
  - APPLICATION SITE REACTION [None]
